FAERS Safety Report 17502223 (Version 1)
Quarter: 2020Q1

REPORT INFORMATION
  Report Type: Spontaneous
  Country: US (occurrence: US)
  Receive Date: 20200305
  Receipt Date: 20200305
  Transmission Date: 20200409
  Serious: No
  Sender: FDA-Public Use
  Company Number: US-AMAG PHARMACEUTICALS, INC.-AMAG202000806

PATIENT
  Sex: Female

DRUGS (1)
  1. VYLEESI [Suspect]
     Active Substance: BREMELANOTIDE ACETATE
     Indication: PRODUCT USED FOR UNKNOWN INDICATION
     Route: 058
     Dates: start: 2020

REACTIONS (3)
  - Vulvovaginal burning sensation [Unknown]
  - Vulvovaginal pruritus [Unknown]
  - Vulvovaginal swelling [Unknown]

NARRATIVE: CASE EVENT DATE: 2020
